FAERS Safety Report 5937868-3 (Version None)
Quarter: 2008Q4

REPORT INFORMATION
  Report Type: 
  Country: None (occurrence: None)
  Receive Date: 20081031
  Receipt Date: 20081022
  Transmission Date: 20090506
  Serious: Yes (Other)
  Sender: FDA-Public Use
  Company Number: NZ-BAXTER-2008BH010098

PATIENT
  Age: 10 Year
  Sex: Female

DRUGS (4)
  1. IMMUNE GLOBULIN INTRAVENOUS (HUMAN) [Suspect]
     Indication: ADVERSE DRUG REACTION
     Route: 042
     Dates: start: 20060912, end: 20060912
  2. IMMUNE GLOBULIN INTRAVENOUS (HUMAN) [Suspect]
     Indication: OFF LABEL USE
     Route: 042
     Dates: start: 20060912, end: 20060912
  3. CARBAMAZEPINE [Suspect]
     Indication: EPILEPSY
     Dosage: DOSE UNIT:UNKNOWN
     Route: 065
  4. PREDNISOLONE [Suspect]
     Indication: DRUG USE FOR UNKNOWN INDICATION
     Dosage: DOSE UNIT:UNKNOWN
     Route: 065

REACTIONS (2)
  - DRUG HYPERSENSITIVITY [None]
  - TENDONITIS [None]
